FAERS Safety Report 4510791-7 (Version None)
Quarter: 2004Q4

REPORT INFORMATION
  Report Type: 
  Country: None (occurrence: None)
  Receive Date: 20041122
  Receipt Date: 20041112
  Transmission Date: 20050328
  Serious: Yes (Disabling)
  Sender: FDA-Public Use
  Company Number: 2004-11-0636

PATIENT
  Age: 70 Year
  Sex: Male
  Weight: 80 kg

DRUGS (1)
  1. VIRAFERONPEG [Suspect]
     Indication: HEPATITIS C
     Dosage: SUBCUTANEOUS
     Route: 058
     Dates: start: 20030125, end: 20031105

REACTIONS (8)
  - ERYTHEMA [None]
  - IMPAIRED HEALING [None]
  - INDURATION [None]
  - INFLAMMATION [None]
  - INJECTION SITE NECROSIS [None]
  - PAIN [None]
  - PRURITUS [None]
  - SKIN NECROSIS [None]
